FAERS Safety Report 7258299-2 (Version None)
Quarter: 2011Q1

REPORT INFORMATION
  Report Type: 
  Country: None (occurrence: None)
  Receive Date: 20110129
  Receipt Date: 20100727
  Transmission Date: 20110831
  Serious: No
  Sender: FDA-Public Use
  Company Number: US-ABBOTT-10P-163-0660345-00

PATIENT
  Age: 65 Year
  Sex: Female

DRUGS (14)
  1. HUMIRA [Suspect]
     Indication: PRODUCT USED FOR UNKNOWN INDICATION
     Dates: start: 20060101
  2. COREG [Concomitant]
     Indication: PRODUCT USED FOR UNKNOWN INDICATION
  3. LEFLUNOMIDE [Concomitant]
     Indication: PRODUCT USED FOR UNKNOWN INDICATION
  4. RASASIS EYE GTTS [Concomitant]
     Indication: PRODUCT USED FOR UNKNOWN INDICATION
  5. FOLIC ACID [Concomitant]
     Indication: PRODUCT USED FOR UNKNOWN INDICATION
  6. PREDNISONE [Concomitant]
     Indication: PRODUCT USED FOR UNKNOWN INDICATION
  7. SYNTHROID [Concomitant]
     Indication: PRODUCT USED FOR UNKNOWN INDICATION
  8. PATANASE [Concomitant]
     Indication: PRODUCT USED FOR UNKNOWN INDICATION
     Dosage: 2 SPRAYS PER NOSTRIL
  9. SALINE NASAL SPRAY [Concomitant]
     Indication: PRODUCT USED FOR UNKNOWN INDICATION
  10. HYDROXYZINE [Concomitant]
     Indication: PRODUCT USED FOR UNKNOWN INDICATION
  11. METHOTREXATE [Concomitant]
     Indication: PRODUCT USED FOR UNKNOWN INDICATION
  12. LISINOPRIL [Concomitant]
     Indication: PRODUCT USED FOR UNKNOWN INDICATION
  13. CALTRATE [Concomitant]
     Indication: PRODUCT USED FOR UNKNOWN INDICATION
  14. ORENCIA [Concomitant]
     Indication: PRODUCT USED FOR UNKNOWN INDICATION
     Dosage: INFUSION

REACTIONS (10)
  - SINUS CONGESTION [None]
  - INCREASED UPPER AIRWAY SECRETION [None]
  - MOUTH ULCERATION [None]
  - VISUAL IMPAIRMENT [None]
  - ILL-DEFINED DISORDER [None]
  - BLISTER [None]
  - EAR DISCOMFORT [None]
  - ARTERIAL OCCLUSIVE DISEASE [None]
  - SINUS OPERATION [None]
  - PYREXIA [None]
